FAERS Safety Report 21772501 (Version 1)
Quarter: 2022Q4

REPORT INFORMATION
  Report Type: Spontaneous
  Country: NL (occurrence: NL)
  Receive Date: 20221223
  Receipt Date: 20221223
  Transmission Date: 20230113
  Serious: Yes (Disabling)
  Sender: FDA-Public Use
  Company Number: None

PATIENT
  Sex: Female
  Weight: 58 kg

DRUGS (3)
  1. FLUDARABINE [Suspect]
     Active Substance: FLUDARABINE PHOSPHATE
     Indication: Follicular lymphoma
     Dosage: 40 MG/M2 DAILY; 1 TIME PER DAY 40 MG/M2 FOR 3 DAYS; FLUDARABINE INJOPL CONC 25MG/ML / BRAND NAME NOT
     Dates: start: 20220905
  2. CYCLOPHOSPHAMIDE [Concomitant]
     Active Substance: CYCLOPHOSPHAMIDE
     Indication: Product used for unknown indication
     Dosage: CYCLOPHOPHAMIDE DRAGEE 50MG / BRAND NAME NOT SPECIFIED; THERAPY START AND END DATE: ASKU
  3. MABTHERA [Concomitant]
     Active Substance: RITUXIMAB
     Indication: Product used for unknown indication
     Dosage: INJECTION FLUID, 120 MG/ML ; RITUXIMAB INJVLST 120MG/ML / MABTHERA INJVLST 1400MG/11.7ML (120MG/ML)

REACTIONS (2)
  - Pyramidal tract syndrome [Recovering/Resolving]
  - Cerebellar ataxia [Recovering/Resolving]
